FAERS Safety Report 9554355 (Version 1)
Quarter: 2013Q3

REPORT INFORMATION
  Report Type: Spontaneous
  Country: JP (occurrence: JP)
  Receive Date: 20130925
  Receipt Date: 20130925
  Transmission Date: 20140515
  Serious: Yes (Hospitalization)
  Sender: FDA-Public Use
  Company Number: JP-PFIZER INC-2013271408

PATIENT
  Age: 5 Year
  Sex: 0

DRUGS (5)
  1. ZITHROMAC [Suspect]
     Indication: NASOPHARYNGITIS
     Dosage: 1 G, 1X/DAY, PRESCRIBED FOR 3 DAYS
     Dates: start: 20130912
  2. ZITHROMAC [Suspect]
     Indication: UPPER RESPIRATORY TRACT INFLAMMATION
  3. MEPTIN [Concomitant]
     Dosage: UNK
     Dates: start: 20130912
  4. MUCODYNE [Concomitant]
     Dosage: UNK
     Dates: start: 20130912
  5. MUCOSOLVAN [Concomitant]
     Dosage: UNK
     Dates: start: 20130912

REACTIONS (5)
  - Eczema [Unknown]
  - Local swelling [Unknown]
  - Pain in extremity [Unknown]
  - Insomnia [Unknown]
  - Chest discomfort [Unknown]
